FAERS Safety Report 4851858-3 (Version None)
Quarter: 2005Q4

REPORT INFORMATION
  Report Type: 
  Country: None (occurrence: None)
  Receive Date: 20051125
  Receipt Date: 20050207
  Transmission Date: 20060501
  Serious: Yes (Other)
  Sender: FDA-Public Use
  Company Number: 2005020295

PATIENT
  Age: 77 Year
  Sex: Female
  Weight: 72.5755 kg

DRUGS (14)
  1. TIKOSYN [Suspect]
     Indication: ATRIAL FIBRILLATION
     Dosage: 1000 MCG (500 MCG, 2 IN 1 D), ORAL
     Route: 048
     Dates: start: 20050104
  2. DILTIAZEM [Suspect]
     Indication: ATRIAL FIBRILLATION
     Dosage: AS NECESSARY, ORAL
     Route: 048
  3. VALSARTAN [Concomitant]
  4. EZETIMIBE (EZETIMIBE) [Concomitant]
  5. GEMFIBROZIL [Concomitant]
  6. CALCIUM CITRATE (CALCIUM CITRATE) [Concomitant]
  7. GLUCOSAMINE (GLCUOSAMINE) [Concomitant]
  8. CHONDROITIN  SULFATE (CHONODROITIN SULFATE) [Concomitant]
  9. ESOMEPRAZOLE (ESOMEPRAZOLE) [Concomitant]
  10. PRAVASTATIN [Concomitant]
  11. LEVOTHYROXINE SODIUM [Concomitant]
  12. WARFARIN SODIUM [Concomitant]
  13. MULTI-VITAMINS VITAFIT (CALCIUM PANTOTHENATE, FOLIC ACID, VITAMIN NOS) [Concomitant]
  14. RISEDRONATE SODIUM (RISEDRONATE SODIUM) [Concomitant]

REACTIONS (3)
  - ATRIAL FIBRILLATION [None]
  - BLOOD MAGNESIUM DECREASED [None]
  - ELECTROCARDIOGRAM ABNORMAL [None]
